FAERS Safety Report 4510007-1 (Version None)
Quarter: 2004Q4

REPORT INFORMATION
  Report Type: 
  Country: None (occurrence: None)
  Receive Date: 20041124
  Receipt Date: 20041117
  Transmission Date: 20050328
  Serious: Yes (Death, Life-Threatening, Hospitalization)
  Sender: FDA-Public Use
  Company Number: MY-ABBOTT-04P-101-0281094-00

PATIENT
  Sex: Male
  Weight: 65 kg

DRUGS (5)
  1. GENGRAF [Suspect]
     Indication: IMMUNOSUPPRESSION
     Route: 048
     Dates: start: 20030930, end: 20040218
  2. MYCOPHENOLATE MOFETIL [Suspect]
     Indication: IMMUNOSUPPRESSION
     Route: 048
     Dates: start: 20030930, end: 20040218
  3. DILTIAZEM [Concomitant]
     Indication: BLOOD PRESSURE
     Route: 048
     Dates: start: 20040214, end: 20040301
  4. PREDNISOLONE [Concomitant]
     Indication: DRUG USE FOR UNKNOWN INDICATION
     Route: 048
     Dates: start: 20030930, end: 20040301
  5. ATENOLOL [Concomitant]
     Indication: HYPERTENSION
     Route: 048
     Dates: start: 20040119, end: 20040214

REACTIONS (4)
  - COUGH [None]
  - DYSPNOEA [None]
  - PNEUMOCYSTIS CARINII INFECTION [None]
  - PYREXIA [None]
